FAERS Safety Report 4837872-2 (Version None)
Quarter: 2005Q4

REPORT INFORMATION
  Report Type: 
  Country: None (occurrence: None)
  Receive Date: 20051128
  Receipt Date: 20051114
  Transmission Date: 20060501
  Serious: Yes (Other)
  Sender: FDA-Public Use
  Company Number: DE-JNJFOC-20050905832

PATIENT
  Sex: Male
  Weight: 68 kg

DRUGS (2)
  1. TOPAMAX [Suspect]
     Indication: EPILEPSY
     Dosage: 50MG IN THE MORNING, 100MG IN THE EVENING.
     Route: 048
     Dates: start: 20040220, end: 20050926
  2. VALPROIC ACID [Concomitant]
     Route: 048

REACTIONS (4)
  - OPTIC ATROPHY [None]
  - PARAESTHESIA [None]
  - VISUAL ACUITY REDUCED [None]
  - VISUAL FIELD DEFECT [None]
